FAERS Safety Report 8719266 (Version 2)
Quarter: 2012Q4

REPORT INFORMATION
  Report Type: 
  Country: US (occurrence: US)
  Receive Date: 20120813
  Receipt Date: 20121226
  Transmission Date: 20130627
  Serious: No
  Sender: FDA-Public Use
  Company Number: US-009507513-1208USA004446

PATIENT
  Age: 53 Year
  Sex: Male

DRUGS (1)
  1. NASONEX [Suspect]
     Indication: HYPERSENSITIVITY
     Dosage: 4 DF, qd
     Route: 045
     Dates: start: 20120731, end: 20120802

REACTIONS (2)
  - Nasal congestion [Not Recovered/Not Resolved]
  - Drug ineffective [Unknown]
